FAERS Safety Report 23919559 (Version 2)
Quarter: 2024Q2

REPORT INFORMATION
  Report Type: Other
  Country: US (occurrence: None)
  Receive Date: 20240530
  Receipt Date: 20240605
  Transmission Date: 20240716
  Serious: Yes (Hospitalization)
  Sender: FDA-Public Use
  Company Number: US-ROCHE-3568873

PATIENT
  Age: 53 Year
  Sex: Male
  Weight: 85.352 kg

DRUGS (2)
  1. OCREVUS [Suspect]
     Active Substance: OCRELIZUMAB
     Indication: Relapsing-remitting multiple sclerosis
     Dosage: DATE OF TREATMENT: 23/JAN/2024
     Route: 042
  2. OCREVUS [Suspect]
     Active Substance: OCRELIZUMAB
     Dosage: THERAPY END DATE IS 13/JUN/2024
     Route: 042
     Dates: start: 20230613

REACTIONS (3)
  - Localised infection [Recovered/Resolved]
  - Arthropod bite [Recovered/Resolved]
  - Limb discomfort [Not Recovered/Not Resolved]
